FAERS Safety Report 16298052 (Version 2)
Quarter: 2019Q2

REPORT INFORMATION
  Report Type: Spontaneous
  Country: US (occurrence: US)
  Receive Date: 20190510
  Receipt Date: 20190524
  Transmission Date: 20190711
  Serious: No
  Sender: FDA-Public Use
  Company Number: US-ALKERMES INC.-ALK-2019-001639

PATIENT
  Age: 53 Year
  Sex: Male
  Weight: 86.17 kg

DRUGS (4)
  1. IBUPROFEN. [Suspect]
     Active Substance: IBUPROFEN
     Indication: MYALGIA
     Dosage: 2400 MG, UNK
     Route: 065
     Dates: start: 2019
  2. ROBAXIN [Concomitant]
     Active Substance: METHOCARBAMOL
     Indication: PRODUCT USED FOR UNKNOWN INDICATION
     Dosage: UNK
     Dates: end: 201905
  3. VIVITROL [Suspect]
     Active Substance: NALTREXONE
     Indication: ALCOHOLISM
     Dosage: 380 MG, QMO
     Route: 030
     Dates: start: 20190210
  4. OTHER THERAPEUTIC PRODUCTS [Concomitant]
     Active Substance: UNSPECIFIED INGREDIENT
     Indication: DEPRESSION
     Dosage: UNK
     Dates: end: 201905

REACTIONS (5)
  - Myalgia [Unknown]
  - Hyperventilation [Recovered/Resolved]
  - Urine cannabinoids increased [Recovered/Resolved]
  - Anxiety [Not Recovered/Not Resolved]
  - Opiates positive [Not Recovered/Not Resolved]

NARRATIVE: CASE EVENT DATE: 2019
